FAERS Safety Report 15981471 (Version 1)
Quarter: 2019Q1

REPORT INFORMATION
  Report Type: Spontaneous
  Country: US (occurrence: US)
  Receive Date: 20190219
  Receipt Date: 20190219
  Transmission Date: 20190418
  Serious: No
  Sender: FDA-Public Use
  Company Number: US-TEVA-2019-US-1006066

PATIENT

DRUGS (1)
  1. METRONIDAZOLE TEVA [Suspect]
     Active Substance: METRONIDAZOLE
     Route: 065

REACTIONS (2)
  - Impaired quality of life [Unknown]
  - Adverse drug reaction [Unknown]
